FAERS Safety Report 5393454-8 (Version None)
Quarter: 2007Q3

REPORT INFORMATION
  Report Type: 
  Country: None (occurrence: None)
  Receive Date: 20070723
  Receipt Date: 20060602
  Transmission Date: 20080115
  Serious: No
  Sender: FDA-Public Use
  Company Number: A0607772A

PATIENT
  Age: 79 Year
  Sex: Male

DRUGS (4)
  1. AVANDIA [Suspect]
     Dosage: 4MG PER DAY
     Route: 048
     Dates: start: 20060501
  2. GLUCOPHAGE XR [Suspect]
     Dosage: 500MG THREE TIMES PER DAY
     Route: 048
     Dates: start: 20060501
  3. AMARYL [Concomitant]
  4. HYTRIN [Concomitant]

REACTIONS (2)
  - BLOOD GLUCOSE FLUCTUATION [None]
  - BLOOD GLUCOSE INCREASED [None]
